FAERS Safety Report 8883636 (Version 1)
Quarter: 2012Q4

REPORT INFORMATION
  Report Type: 
  Country: US (occurrence: US)
  Receive Date: 20121102
  Receipt Date: 20121102
  Transmission Date: 20130627
  Serious: No
  Sender: FDA-Public Use
  Company Number: US-ASTRAZENECA-2012SE01055

PATIENT
  Age: 65 Year
  Sex: Male
  Weight: 74.8 kg

DRUGS (1)
  1. CRESTOR [Suspect]
     Indication: HYPERCHOLESTEROLAEMIA
     Route: 048
     Dates: start: 20110901, end: 20120101

REACTIONS (4)
  - Musculoskeletal stiffness [Unknown]
  - Wrong technique in drug usage process [Unknown]
  - Incorrect dose administered [Unknown]
  - Drug dose omission [Unknown]
